FAERS Safety Report 8923827 (Version 1)
Quarter: 2012Q4

REPORT INFORMATION
  Report Type: 
  Country: US (occurrence: US)
  Receive Date: 20121126
  Receipt Date: 20121126
  Transmission Date: 20130627
  Serious: Yes (Other)
  Sender: FDA-Public Use
  Company Number: US-UCBSA-071404

PATIENT
  Age: 69 Year
  Sex: Female

DRUGS (3)
  1. CIMZIA [Suspect]
  2. CIMZIA [Suspect]
     Dosage: 800 MG A MONTH
  3. PREDNISONE [Concomitant]

REACTIONS (4)
  - Adrenal insufficiency [Unknown]
  - Dyspnoea [Unknown]
  - Heart rate increased [Unknown]
  - Overdose [Unknown]
